FAERS Safety Report 6215623-7 (Version None)
Quarter: 2009Q2

REPORT INFORMATION
  Report Type: 
  Country: None (occurrence: None)
  Receive Date: 20090603
  Receipt Date: 20090603
  Transmission Date: 20091009
  Serious: No
  Sender: FDA-Public Use
  Company Number: None

PATIENT
  Sex: Male
  Weight: 83.0083 kg

DRUGS (3)
  1. ZOLOFT [Suspect]
     Indication: AFFECTIVE DISORDER
     Dosage: 50 MG DAILY PO
     Route: 048
  2. PREVACID [Suspect]
  3. PROTONIX [Suspect]

REACTIONS (1)
  - RASH [None]
